FAERS Safety Report 7245837-9 (Version None)
Quarter: 2011Q1

REPORT INFORMATION
  Report Type: 
  Country: None (occurrence: None)
  Receive Date: 20110126
  Receipt Date: 20110119
  Transmission Date: 20110831
  Serious: Yes (Hospitalization, Disabling)
  Sender: FDA-Public Use
  Company Number: PT-MERCK-1101USA02352

PATIENT
  Age: 29 Year
  Sex: Male
  Weight: 60 kg

DRUGS (2)
  1. FUROSEMIDE [Concomitant]
     Route: 065
  2. DECADRON [Suspect]
     Route: 048

REACTIONS (1)
  - FUNGAL INFECTION [None]
